FAERS Safety Report 14764491 (Version 2)
Quarter: 2018Q2

REPORT INFORMATION
  Report Type: Spontaneous
  Country: KR (occurrence: KR)
  Receive Date: 20180416
  Receipt Date: 20180420
  Transmission Date: 20180711
  Serious: Yes (Other)
  Sender: FDA-Public Use
  Company Number: KR-PFIZER INC-2018151454

PATIENT
  Age: 4 Decade
  Sex: Female

DRUGS (3)
  1. CELEBREX [Suspect]
     Active Substance: CELECOXIB
     Indication: PAIN IN EXTREMITY
     Dosage: 100 MG, 2X/DAY
     Route: 048
     Dates: start: 20180411, end: 20180411
  2. SETOPEN [Concomitant]
     Dosage: UNK
     Route: 048
     Dates: start: 20180411
  3. ASTAR [Concomitant]
     Dosage: UNK
     Route: 048
     Dates: start: 20180411

REACTIONS (6)
  - Tachycardia [Recovered/Resolved]
  - Pyrexia [Recovered/Resolved]
  - Heart rate irregular [Recovered/Resolved]
  - Sleep disorder due to general medical condition, insomnia type [Recovered/Resolved]
  - Oedema peripheral [Recovered/Resolved]
  - Blood pressure diastolic increased [Recovered/Resolved]

NARRATIVE: CASE EVENT DATE: 20180411
